FAERS Safety Report 5594058-4 (Version None)
Quarter: 2008Q1

REPORT INFORMATION
  Report Type: 
  Country: None (occurrence: None)
  Receive Date: 20080114
  Receipt Date: 20071231
  Transmission Date: 20080703
  Serious: Yes (Other)
  Sender: FDA-Public Use
  Company Number: 2008AL000070

PATIENT
  Age: 42 Year
  Sex: Female

DRUGS (2)
  1. BUSPIRONE HYDROCHLORIDE [Suspect]
     Dates: start: 20071101, end: 20071101
  2. EFFEXOR XR [Concomitant]

REACTIONS (7)
  - BURNING SENSATION [None]
  - DIZZINESS [None]
  - LETHARGY [None]
  - MYDRIASIS [None]
  - NAUSEA [None]
  - VISION BLURRED [None]
  - WITHDRAWAL SYNDROME [None]
